FAERS Safety Report 8298534-5 (Version None)
Quarter: 2012Q2

REPORT INFORMATION
  Report Type: 
  Country: None (occurrence: None)
  Receive Date: 20120419
  Receipt Date: 20120417
  Transmission Date: 20120825
  Serious: Yes (Other)
  Sender: FDA-Public Use
  Company Number: FR-ROCHE-1060281

PATIENT
  Sex: Female

DRUGS (3)
  1. XELODA [Suspect]
     Indication: BREAST CANCER
     Dates: start: 20100420, end: 20100421
  2. FEMARA [Concomitant]
     Indication: BREAST CANCER
     Route: 048
     Dates: start: 20100401
  3. ZOMETA [Suspect]
     Indication: PRODUCT USED FOR UNKNOWN INDICATION
     Route: 042
     Dates: start: 20100415, end: 20101021

REACTIONS (1)
  - OSTEONECROSIS OF JAW [None]
